FAERS Safety Report 7507112-4 (Version None)
Quarter: 2011Q2

REPORT INFORMATION
  Report Type: 
  Country: None (occurrence: None)
  Receive Date: 20110526
  Receipt Date: 20110512
  Transmission Date: 20111010
  Serious: No
  Sender: FDA-Public Use
  Company Number: US-B.I. PHARMACEUTICALS,INC./RIDGEFIELD-2011-BP-12965BP

PATIENT
  Sex: Female

DRUGS (6)
  1. SYNTHROID [Concomitant]
     Indication: THYROID DISORDER
  2. PRADAXA [Suspect]
     Indication: ATRIAL FIBRILLATION
     Dosage: 300 MG
     Route: 048
     Dates: start: 20110401
  3. SERTRALINE HYDROCHLORIDE [Concomitant]
     Indication: UNEVALUABLE EVENT
  4. CRESTOR [Concomitant]
     Indication: BLOOD CHOLESTEROL
  5. COLESTIPOL HYDROCHLORIDE [Concomitant]
     Indication: INTESTINAL FUNCTIONAL DISORDER
  6. PACERONE [Concomitant]
     Indication: ATRIAL FIBRILLATION

REACTIONS (2)
  - FATIGUE [None]
  - INSOMNIA [None]
